FAERS Safety Report 7608447-7 (Version None)
Quarter: 2011Q3

REPORT INFORMATION
  Report Type: 
  Country: None (occurrence: None)
  Receive Date: 20110714
  Receipt Date: 20110705
  Transmission Date: 20111222
  Serious: Yes (Disabling, Other)
  Sender: FDA-Public Use
  Company Number: US-ELI_LILLY_AND_COMPANY-US201107001950

PATIENT
  Sex: Female

DRUGS (1)
  1. CYMBALTA [Suspect]
     Dosage: 60 MG, UNKNOWN
     Dates: start: 20050101

REACTIONS (3)
  - RHEUMATOID ARTHRITIS [None]
  - THROMBOSIS [None]
  - SURGERY [None]
